APPROVED DRUG PRODUCT: ADAPALENE AND BENZOYL PEROXIDE
Active Ingredient: ADAPALENE; BENZOYL PEROXIDE
Strength: 0.1%;2.5%
Dosage Form/Route: GEL;TOPICAL
Application: A203790 | Product #001
Applicant: ACTAVIS MID ATLANTIC LLC
Approved: Sep 30, 2015 | RLD: No | RS: No | Type: DISCN